FAERS Safety Report 7753648-0 (Version None)
Quarter: 2011Q3

REPORT INFORMATION
  Report Type: 
  Country: None (occurrence: None)
  Receive Date: 20110915
  Receipt Date: 20110912
  Transmission Date: 20111222
  Serious: Yes (Other)
  Sender: FDA-Public Use
  Company Number: DE-GLAXOSMITHKLINE-D0072679A

PATIENT
  Sex: Female

DRUGS (1)
  1. AVAMYS [Suspect]
     Route: 045

REACTIONS (1)
  - VISUAL ACUITY REDUCED [None]
